FAERS Safety Report 22863071 (Version 2)
Quarter: 2023Q4

REPORT INFORMATION
  Report Type: Spontaneous
  Country: CL (occurrence: CL)
  Receive Date: 20230824
  Receipt Date: 20231127
  Transmission Date: 20240109
  Serious: Yes (Death, Hospitalization, Other)
  Sender: FDA-Public Use
  Company Number: CL-JAZZ PHARMACEUTICALS-2023-CL-017778

PATIENT
  Age: 15 Year
  Sex: Male

DRUGS (1)
  1. DEFIBROTIDE SODIUM [Suspect]
     Active Substance: DEFIBROTIDE SODIUM
     Indication: Venoocclusive liver disease
     Dosage: 500 MILLIGRAM, EVERY 6 HOURS
     Dates: start: 202308

REACTIONS (5)
  - Bone marrow failure [Fatal]
  - Thrombotic microangiopathy [Fatal]
  - Candida infection [Fatal]
  - Pathogen resistance [Fatal]
  - Haemorrhage [Unknown]

NARRATIVE: CASE EVENT DATE: 20230801
